FAERS Safety Report 9829951 (Version 2)
Quarter: 2014Q1

REPORT INFORMATION
  Report Type: Spontaneous
  Country: US (occurrence: US)
  Receive Date: 20140120
  Receipt Date: 20140325
  Transmission Date: 20141002
  Serious: No
  Sender: FDA-Public Use
  Company Number: US-009507513-1401USA000517

PATIENT
  Age: 22 Year
  Sex: Female

DRUGS (1)
  1. NEXPLANON [Suspect]
     Dosage: 68 MG/ ONE ROD INSERTED, EVERY THREE YEARS
     Route: 059
     Dates: start: 20131230

REACTIONS (4)
  - Device difficult to use [Recovered/Resolved]
  - Device expulsion [Recovered/Resolved]
  - Product quality issue [Unknown]
  - No adverse event [Unknown]
